FAERS Safety Report 5048558-6 (Version None)
Quarter: 2006Q2

REPORT INFORMATION
  Report Type: 
  Country: None (occurrence: None)
  Receive Date: 20060601
  Receipt Date: 20060309
  Transmission Date: 20061013
  Serious: No
  Sender: FDA-Public Use
  Company Number: US200603002639

PATIENT
  Age: 23 Year
  Sex: Female

DRUGS (1)
  1. CYMBALTA [Suspect]
     Indication: ANXIETY
     Dosage: 60 MG
     Dates: start: 20060201, end: 20060304

REACTIONS (10)
  - AFFECT LABILITY [None]
  - ASTHENIA [None]
  - CHILLS [None]
  - CRYING [None]
  - DIARRHOEA [None]
  - MUSCLE TWITCHING [None]
  - NAUSEA [None]
  - SOMNOLENCE [None]
  - SUICIDAL IDEATION [None]
  - VISUAL DISTURBANCE [None]
